FAERS Safety Report 23186932 (Version 1)
Quarter: 2023Q4

REPORT INFORMATION
  Report Type: Spontaneous
  Country: US (occurrence: US)
  Receive Date: 20231115
  Receipt Date: 20231115
  Transmission Date: 20240110
  Serious: Yes (Death, Other)
  Sender: FDA-Public Use
  Company Number: US-ENDO-CASE-0042131

PATIENT
  Sex: Female

DRUGS (8)
  1. ACETAMINOPHEN\OXYCODONE HYDROCHLORIDE [Suspect]
     Active Substance: ACETAMINOPHEN\OXYCODONE HYDROCHLORIDE
  2. ACETAMINOPHEN\HYDROCODONE BITARTRATE [Suspect]
     Active Substance: ACETAMINOPHEN\HYDROCODONE BITARTRATE
  3. MORPHINE SULFATE [Suspect]
     Active Substance: MORPHINE SULFATE
  4. FENTANYL CITRATE [Suspect]
     Active Substance: FENTANYL CITRATE
  5. OXYMORPHONE [Suspect]
     Active Substance: OXYMORPHONE
  6. ZOLPIDEM [Suspect]
     Active Substance: ZOLPIDEM TARTRATE
  7. OPANA [Suspect]
     Active Substance: OXYMORPHONE HYDROCHLORIDE
  8. DEPODUR [Suspect]
     Active Substance: MORPHINE SULFATE

REACTIONS (4)
  - Death [Fatal]
  - Overdose [Unknown]
  - Dependence [Unknown]
  - Toxicity to various agents [Unknown]
